FAERS Safety Report 8969295 (Version 1)
Quarter: 2012Q4

REPORT INFORMATION
  Report Type: 
  Country: US (occurrence: US)
  Receive Date: 20121218
  Receipt Date: 20121218
  Transmission Date: 20130627
  Serious: Yes (Other)
  Sender: FDA-Public Use
  Company Number: US-JNJCP-30000008197

PATIENT
  Age: 43 Year
  Sex: Female

DRUGS (1)
  1. C+C ADVANTAGE ACNE SPOT TREATMENT [Suspect]
     Indication: ACNE
     Dosage: One time once
     Route: 061
     Dates: start: 20100417, end: 20100417

REACTIONS (5)
  - Application site burn [Not Recovered/Not Resolved]
  - Application site scar [Not Recovered/Not Resolved]
  - Application site pain [Not Recovered/Not Resolved]
  - Product lot number issue [Unknown]
  - Product expiration date issue [Unknown]
